FAERS Safety Report 18558546 (Version 1)
Quarter: 2020Q4

REPORT INFORMATION
  Report Type: Spontaneous
  Country: US (occurrence: US)
  Receive Date: 20201126
  Receipt Date: 20201126
  Transmission Date: 20210114
  Serious: Yes (Death, Hospitalization)
  Sender: FDA-Public Use
  Company Number: None

PATIENT
  Age: 71 Year
  Sex: Male
  Weight: 111.13 kg

DRUGS (1)
  1. AMNEAL EPINEPHRINE AUTO-INJECTOR [Suspect]
     Active Substance: EPINEPHRINE

REACTIONS (9)
  - Brain injury [None]
  - Device malfunction [None]
  - Product substitution issue [None]
  - Dyspnoea [None]
  - Cardiac arrest [None]
  - Needle issue [None]
  - Device delivery system issue [None]
  - Recalled product [None]
  - Syncope [None]

NARRATIVE: CASE EVENT DATE: 20200822
